FAERS Safety Report 18228840 (Version 1)
Quarter: 2020Q3

REPORT INFORMATION
  Report Type: Report from Study
  Country: TR (occurrence: TR)
  Receive Date: 20200903
  Receipt Date: 20200903
  Transmission Date: 20201103
  Serious: Yes (Other)
  Sender: FDA-Public Use
  Company Number: TR-TEVA-2020-TR-1823209

PATIENT
  Age: 20 Year
  Sex: Female

DRUGS (2)
  1. DEVIT [Concomitant]
     Indication: HYPOVITAMINOSIS
     Dosage: 1 GTT DAILY;
     Route: 048
     Dates: start: 20200310
  2. COPAXONE [Suspect]
     Active Substance: GLATIRAMER ACETATE
     Indication: MULTIPLE SCLEROSIS
     Route: 058
     Dates: start: 20200113

REACTIONS (3)
  - SARS-CoV-2 test positive [Unknown]
  - Oropharyngeal pain [Unknown]
  - Headache [Unknown]

NARRATIVE: CASE EVENT DATE: 2020
